FAERS Safety Report 9137120 (Version 1)
Quarter: 2013Q1

REPORT INFORMATION
  Report Type: Spontaneous
  Country: IL (occurrence: IL)
  Receive Date: 20130304
  Receipt Date: 20130304
  Transmission Date: 20140127
  Serious: Yes (Death)
  Sender: FDA-Public Use
  Company Number: IL-ASTRAZENECA-2013SE13441

PATIENT
  Age: 730 Day
  Sex: 0

DRUGS (2)
  1. SYNAGIS [Suspect]
     Indication: RESPIRATORY FAILURE
     Route: 030
  2. AML INDUCTION THERAPY [Suspect]
     Indication: ACUTE MYELOID LEUKAEMIA

REACTIONS (1)
  - Lung disorder [Fatal]
